FAERS Safety Report 13465082 (Version 5)
Quarter: 2017Q2

REPORT INFORMATION
  Report Type: Report from Study
  Country: None (occurrence: ES)
  Receive Date: 20170421
  Receipt Date: 20170517
  Transmission Date: 20170830
  Serious: Yes (Death, Hospitalization, Other)
  Sender: FDA-Public Use
  Company Number: ES-ABBVIE-17K-144-1948324-00

PATIENT
  Age: 76 Year
  Sex: Male

DRUGS (3)
  1. DUODOPA [Suspect]
     Active Substance: CARBIDOPA\LEVODOPA
     Dosage: CONTINUOUS DOSE DECREASED FROM 2.7 TO 2.4 ML/HOUR
     Route: 050
  2. DUODOPA [Suspect]
     Active Substance: CARBIDOPA\LEVODOPA
     Indication: PARKINSON^S DISEASE
     Route: 050
     Dates: start: 20140217
  3. DUODOPA [Suspect]
     Active Substance: CARBIDOPA\LEVODOPA
     Dosage: CONTINUOUS DOSE 2.4 ML/H
     Route: 050

REACTIONS (14)
  - Respiratory tract infection [Recovering/Resolving]
  - Gastroenteritis [Recovered/Resolved]
  - Hyperpyrexia [Fatal]
  - Weight decreased [Recovering/Resolving]
  - Insomnia [Not Recovered/Not Resolved]
  - Critical illness [Fatal]
  - Feeding intolerance [Recovered/Resolved]
  - Frequent bowel movements [Unknown]
  - Pneumonia [Recovered/Resolved]
  - Haematuria [Fatal]
  - Gastroenteritis [Fatal]
  - Disorientation [Not Recovered/Not Resolved]
  - Respiratory tract infection [Fatal]
  - White blood cell count increased [Unknown]

NARRATIVE: CASE EVENT DATE: 201704
